FAERS Safety Report 7395130-9 (Version None)
Quarter: 2011Q2

REPORT INFORMATION
  Report Type: 
  Country: None (occurrence: None)
  Receive Date: 20110405
  Receipt Date: 20110322
  Transmission Date: 20111010
  Serious: Yes (Other)
  Sender: FDA-Public Use
  Company Number: PHHY2010SG89139

PATIENT
  Sex: Female

DRUGS (1)
  1. ZOMETA [Suspect]
     Indication: OSTEOPOROSIS
     Dosage: 4 MG, 30 MIN INFUSION
     Dates: start: 20101214

REACTIONS (8)
  - DIZZINESS [None]
  - TRIGEMINAL NERVE DISORDER [None]
  - MYALGIA [None]
  - ASTHENIA [None]
  - DEAFNESS UNILATERAL [None]
  - HEADACHE [None]
  - DEPRESSION [None]
  - HYPOAESTHESIA FACIAL [None]
